FAERS Safety Report 10019221 (Version 1)
Quarter: 2014Q1

REPORT INFORMATION
  Report Type: Spontaneous
  Country: US (occurrence: None)
  Receive Date: 20140314
  Receipt Date: 20140314
  Transmission Date: 20141002
  Serious: Yes (Other)
  Sender: FDA-Public Use
  Company Number: None

PATIENT
  Age: 56 Year
  Sex: Female
  Weight: 56 kg

DRUGS (1)
  1. SUMATRIPTAN [Suspect]
     Indication: MIGRAINE WITHOUT AURA
     Dosage: 1 QID SUBCUTANEOUS
     Route: 058
     Dates: start: 20140305, end: 20140305

REACTIONS (5)
  - Nausea [None]
  - Vomiting [None]
  - Migraine [None]
  - Syringe issue [None]
  - Device failure [None]
